FAERS Safety Report 5097432-8 (Version None)
Quarter: 2006Q3

REPORT INFORMATION
  Report Type: 
  Country: None (occurrence: None)
  Receive Date: 20060901
  Receipt Date: 20060824
  Transmission Date: 20061208
  Serious: Yes (Other)
  Sender: FDA-Public Use
  Company Number: 2006SP000259

PATIENT
  Age: 82 Year
  Sex: Male

DRUGS (1)
  1. CLARITIN [Suspect]
     Indication: DRUG USE FOR UNKNOWN INDICATION
     Dosage: PRN;PO
     Route: 048
     Dates: start: 20060801, end: 20060824

REACTIONS (1)
  - EPISTAXIS [None]
